FAERS Safety Report 8932531 (Version 1)
Quarter: 2012Q4

REPORT INFORMATION
  Report Type: Spontaneous
  Country: US (occurrence: None)
  Receive Date: 20121126
  Receipt Date: 20121126
  Transmission Date: 20130627
  Serious: Yes (Hospitalization, Disabling)
  Sender: FDA-Public Use
  Company Number: None

PATIENT
  Age: 74 Year
  Sex: Female
  Weight: 86.3 kg

DRUGS (3)
  1. VANCOMYCIN [Suspect]
     Indication: STAPHYLOCOCCAL OSTEOMYELITIS
     Dosage: Vancomycin 1G  q12 hour IV
Approx 10/6 x 7 days
     Route: 042
  2. VANCOMYCIN [Suspect]
     Indication: INFECTION MRSA
     Dosage: Vancomycin 1G  q12 hour IV
Approx 10/6 x 7 days
     Route: 042
  3. VANCOMYCIN [Suspect]
     Indication: VANCOMYCIN-RESISTANT ENTEROCOCCAL INFECTION
     Dosage: Vancomycin 1G  q12 hour IV
Approx 10/6 x 7 days
     Route: 042

REACTIONS (4)
  - Hyperkalaemia [None]
  - Renal failure acute [None]
  - Rash generalised [None]
  - Skin exfoliation [None]
